FAERS Safety Report 5192019-0 (Version None)
Quarter: 2006Q4

REPORT INFORMATION
  Report Type: 
  Country: None (occurrence: None)
  Receive Date: 20061220
  Receipt Date: 20061220
  Transmission Date: 20070319
  Serious: Yes (Hospitalization)
  Sender: FDA-Public Use
  Company Number: None

PATIENT
  Age: 54 Year
  Sex: Female
  Weight: 140.6151 kg

DRUGS (8)
  1. MORPHINE [Suspect]
     Indication: PAIN
     Dosage: 1 MG PCA
     Dates: start: 20060822, end: 20060823
  2. PROMETHAZINE [Suspect]
     Indication: NAUSEA
     Dosage: 12.5MG IV
     Route: 042
     Dates: start: 20060822, end: 20060823
  3. ULTRAM [Concomitant]
  4. FLEXERIL [Concomitant]
  5. VALIUM [Concomitant]
  6. SYNTHROID [Concomitant]
  7. NEXIUM [Concomitant]
  8. MULTIVIT [Concomitant]

REACTIONS (5)
  - CONFUSIONAL STATE [None]
  - DEPRESSED LEVEL OF CONSCIOUSNESS [None]
  - HYPOVENTILATION [None]
  - SEDATION [None]
  - SOMNOLENCE [None]
